FAERS Safety Report 14313963 (Version 1)
Quarter: 2017Q4

REPORT INFORMATION
  Report Type: Spontaneous
  Country: TR (occurrence: TR)
  Receive Date: 20171221
  Receipt Date: 20171221
  Transmission Date: 20180321
  Serious: Yes (Other)
  Sender: FDA-Public Use
  Company Number: TR-MYLANLABS-2017M1077817

PATIENT
  Age: 28 Year
  Sex: Male

DRUGS (1)
  1. ISOTRETINOIN. [Suspect]
     Active Substance: ISOTRETINOIN
     Indication: DERMATITIS ACNEIFORM
     Dosage: UNK
     Route: 048

REACTIONS (1)
  - SAPHO syndrome [Recovering/Resolving]
